FAERS Safety Report 11529463 (Version 1)
Quarter: 2015Q3

REPORT INFORMATION
  Report Type: Spontaneous
  Country: US (occurrence: None)
  Receive Date: 20150918
  Receipt Date: 20150918
  Transmission Date: 20151125
  Serious: Yes (Hospitalization)
  Sender: FDA-Public Use
  Company Number: None

PATIENT
  Age: 82 Year
  Sex: Female
  Weight: 72.58 kg

DRUGS (8)
  1. FUROSEMIDE 20 MG [Suspect]
     Active Substance: FUROSEMIDE
  2. RISPERIDONE 1.5 MG ZYDUS [Suspect]
     Active Substance: RISPERIDONE
  3. CODEINE [Concomitant]
     Active Substance: CODEINE
  4. UNISOME [Concomitant]
  5. AMBIEN [Concomitant]
     Active Substance: ZOLPIDEM TARTRATE
  6. DIAZEPAM 10 MG DAN 5620 [Suspect]
     Active Substance: DIAZEPAM
     Indication: PRODUCT USED FOR UNKNOWN INDICATION
  7. JANUMET [Suspect]
     Active Substance: METFORMIN HYDROCHLORIDE\SITAGLIPTIN PHOSPHATE
  8. GLIMEPIRIDE. [Suspect]
     Active Substance: GLIMEPIRIDE

REACTIONS (1)
  - Secretion discharge [None]
